FAERS Safety Report 15635466 (Version 3)
Quarter: 2018Q4

REPORT INFORMATION
  Report Type: Spontaneous
  Country: SE (occurrence: SE)
  Receive Date: 20181120
  Receipt Date: 20181215
  Transmission Date: 20190205
  Serious: Yes (Hospitalization)
  Sender: FDA-Public Use
  Company Number: SE-TEVA-2018-SE-978779

PATIENT
  Age: 35 Year
  Sex: Female

DRUGS (5)
  1. DOXORUBICIN [Suspect]
     Active Substance: DOXORUBICIN
     Indication: HODGKIN^S DISEASE STAGE III
     Route: 065
     Dates: start: 20091110, end: 20100119
  2. VINBLASTINE [Concomitant]
     Active Substance: VINBLASTINE
     Route: 065
  3. BRUFEN [Concomitant]
     Active Substance: IBUPROFEN
     Route: 065
  4. BLEOMYCIN SULFATE [Suspect]
     Active Substance: BLEOMYCIN SULFATE
     Indication: HODGKIN^S DISEASE STAGE III
     Route: 042
     Dates: start: 20091110, end: 20100119
  5. DACARBAZINE. [Suspect]
     Active Substance: DACARBAZINE
     Indication: HODGKIN^S DISEASE STAGE III
     Route: 065
     Dates: start: 20091110, end: 20100119

REACTIONS (2)
  - Pain in extremity [Unknown]
  - Interstitial lung disease [Recovered/Resolved]

NARRATIVE: CASE EVENT DATE: 20100129
